FAERS Safety Report 8220404-9 (Version None)
Quarter: 2012Q1

REPORT INFORMATION
  Report Type: 
  Country: None (occurrence: None)
  Receive Date: 20120316
  Receipt Date: 20120306
  Transmission Date: 20120608
  Serious: Yes (Hospitalization, Other)
  Sender: FDA-Public Use
  Company Number: 2012SP012571

PATIENT
  Sex: Male

DRUGS (3)
  1. RIBAVIRIN [Suspect]
     Indication: HEPATITIS C
     Dates: start: 20111211
  2. PEG-INTRON [Suspect]
     Indication: HEPATITIS C
     Dates: start: 20111211
  3. VICTRELIS [Suspect]
     Indication: HEPATITIS C
     Dates: start: 20120109

REACTIONS (9)
  - ASTHENIA [None]
  - GASTROOESOPHAGEAL REFLUX DISEASE [None]
  - OESOPHAGEAL PAIN [None]
  - DISTURBANCE IN ATTENTION [None]
  - ABDOMINAL DISCOMFORT [None]
  - FATIGUE [None]
  - CONFUSIONAL STATE [None]
  - ABDOMINAL PAIN UPPER [None]
  - ABDOMINAL DISTENSION [None]
